FAERS Safety Report 5383408-X (Version None)
Quarter: 2007Q3

REPORT INFORMATION
  Report Type: 
  Country: None (occurrence: None)
  Receive Date: 20070710
  Receipt Date: 20070628
  Transmission Date: 20080115
  Serious: Yes (Other)
  Sender: FDA-Public Use
  Company Number: US-PFIZER INC-2007054717

PATIENT
  Age: 31 Year
  Sex: Female
  Weight: 56.818 kg

DRUGS (3)
  1. CHANTIX [Suspect]
     Indication: SMOKING CESSATION THERAPY
     Dates: start: 20070522, end: 20070601
  2. SYNTHROID [Concomitant]
  3. ALLEGRA [Concomitant]

REACTIONS (3)
  - INFLUENZA [None]
  - PANIC ATTACK [None]
  - THYROID FUNCTION TEST ABNORMAL [None]
